FAERS Safety Report 23653787 (Version 2)
Quarter: 2024Q2

REPORT INFORMATION
  Report Type: Spontaneous
  Country: GB (occurrence: GB)
  Receive Date: 20240320
  Receipt Date: 20240619
  Transmission Date: 20240716
  Serious: Yes (Hospitalization, Other)
  Sender: FDA-Public Use
  Company Number: GB-MYLANLABS-2024M1024641

PATIENT
  Sex: Male

DRUGS (2)
  1. CLOZARIL [Suspect]
     Active Substance: CLOZAPINE
     Indication: Schizophrenia
     Dosage: UNK
     Route: 048
     Dates: start: 20181002
  2. CLOZARIL [Suspect]
     Active Substance: CLOZAPINE
     Indication: Schizoaffective disorder
     Dosage: UNK
     Route: 065

REACTIONS (6)
  - Hospitalisation [Recovered/Resolved]
  - Seizure [Unknown]
  - White blood cell count increased [Unknown]
  - Treatment noncompliance [Unknown]
  - Therapy cessation [Unknown]
  - Off label use [Unknown]

NARRATIVE: CASE EVENT DATE: 20240301
